FAERS Safety Report 4978377-8 (Version None)
Quarter: 2006Q1

REPORT INFORMATION
  Report Type: 
  Country: None (occurrence: None)
  Receive Date: 20060217
  Receipt Date: 20050328
  Transmission Date: 20060701
  Serious: Yes (Hospitalization)
  Sender: FDA-Public Use
  Company Number: US-2005-001002

PATIENT
  Age: 51 Year
  Sex: Female

DRUGS (5)
  1. MENOSTAR [Suspect]
     Indication: OSTEOPOROSIS
     Dosage: 0.014 MG/D, CONT, TRANSDERMAL
     Route: 062
  2. ESTRADIOL (17B) (ESTRADIOL) [Suspect]
     Indication: METRORRHAGIA
     Dosage: 1 MG, 1X/DAY, DAYS 1-25, ORAL
     Route: 048
  3. PROGESTERONE [Suspect]
     Indication: METRORRHAGIA
     Dosage: 100 MG, 1X/DAY, DAYS 16-25, ORAL
     Route: 048
  4. CALCIUM (CALCIUM) [Concomitant]
  5. VITAMIN D [Concomitant]

REACTIONS (3)
  - METRORRHAGIA [None]
  - UTERINE LEIOMYOMA [None]
  - VAGINAL HAEMORRHAGE [None]
